FAERS Safety Report 5498386-2 (Version None)
Quarter: 2007Q4

REPORT INFORMATION
  Report Type: 
  Country: None (occurrence: None)
  Receive Date: 20071024
  Receipt Date: 20071003
  Transmission Date: 20080405
  Serious: Yes (Other)
  Sender: FDA-Public Use
  Company Number: A-US2006-11956

PATIENT
  Age: 76 Year
  Sex: Female
  Weight: 79.4 kg

DRUGS (22)
  1. TRACLEER [Suspect]
     Indication: PULMONARY HYPERTENSION
     Dosage: 125 MG, BID, ORAL; 62.5 MG, BID, ORAL
     Route: 048
     Dates: start: 20051001, end: 20051101
  2. TRACLEER [Suspect]
     Indication: PULMONARY HYPERTENSION
     Dosage: 125 MG, BID, ORAL; 62.5 MG, BID, ORAL
     Route: 048
     Dates: start: 20051101, end: 20060327
  3. PRILOSEC [Concomitant]
  4. ASPIRIN [Concomitant]
  5. CALCIUM (CALCIUM) [Concomitant]
  6. GLUCOSAMINE (GLUCOSAMINE) [Concomitant]
  7. TRAVATAN [Concomitant]
  8. PREMARIN [Concomitant]
  9. LEVOXYL [Concomitant]
  10. SOTALOL HCL [Concomitant]
  11. LOVASTATIN [Concomitant]
  12. CLONIDINE [Concomitant]
  13. BENAZEPRIL HCL [Concomitant]
  14. COUMADIN [Concomitant]
  15. ISONIAZID [Concomitant]
  16. SILDENAFIL CITRATE [Concomitant]
  17. SPIRIVA [Concomitant]
  18. HYDROCHLOROTHIAZIDE [Concomitant]
  19. VIAGRA [Concomitant]
  20. PLAVIX [Concomitant]
  21. ADVAIR DISKUS 100/50 [Concomitant]
  22. WARFARIN SODIUM [Concomitant]

REACTIONS (2)
  - ALANINE AMINOTRANSFERASE INCREASED [None]
  - ASPARTATE AMINOTRANSFERASE INCREASED [None]
